FAERS Safety Report 23845352 (Version 2)
Quarter: 2024Q2

REPORT INFORMATION
  Report Type: Spontaneous
  Country: CA (occurrence: CA)
  Receive Date: 20240511
  Receipt Date: 20240521
  Transmission Date: 20240716
  Serious: Yes (Hospitalization, Other)
  Sender: FDA-Public Use
  Company Number: CA-ABBVIE-5756652

PATIENT
  Age: 61 Year
  Sex: Female

DRUGS (3)
  1. QULIPTA [Suspect]
     Active Substance: ATOGEPANT
     Indication: Product used for unknown indication
     Route: 048
  2. MODERNA COVID-19 VACCINE [Suspect]
     Active Substance: ELASOMERAN
     Indication: COVID-19 prophylaxis
     Route: 065
  3. EMGALITY [Suspect]
     Active Substance: GALCANEZUMAB-GNLM
     Indication: Migraine
     Dosage: PREFILLED PEN
     Route: 058
     Dates: start: 20210301

REACTIONS (11)
  - Post procedural complication [Unknown]
  - Hypoaesthesia [Unknown]
  - Abdominal pain upper [Unknown]
  - Hypertension [Unknown]
  - Hypoaesthesia [Unknown]
  - Constipation [Unknown]
  - Carditis [Unknown]
  - Transient ischaemic attack [Unknown]
  - Memory impairment [Unknown]
  - Rectal haemorrhage [Recovered/Resolved]
  - Spinal operation [Unknown]
